FAERS Safety Report 20858694 (Version 1)
Quarter: 2022Q2

REPORT INFORMATION
  Report Type: Report from Study
  Country: IN (occurrence: IN)
  Receive Date: 20220522
  Receipt Date: 20220522
  Transmission Date: 20220721
  Serious: Yes (Other)
  Sender: FDA-Public Use
  Company Number: IN-JNJFOC-20220536902

PATIENT

DRUGS (15)
  1. SPORANOX [Suspect]
     Active Substance: ITRACONAZOLE
     Indication: Product used for unknown indication
     Route: 065
  2. PHENOBARBITAL [Suspect]
     Active Substance: PHENOBARBITAL
  3. CARBAMAZEPINE [Suspect]
     Active Substance: CARBAMAZEPINE
  4. VALPROATE SODIUM [Suspect]
     Active Substance: VALPROATE SODIUM
  5. SULFASALAZINE [Suspect]
     Active Substance: SULFASALAZINE
  6. PANTOPRAZOLE [Suspect]
     Active Substance: PANTOPRAZOLE
  7. DICLOFENAC [Suspect]
     Active Substance: DICLOFENAC
  8. CEFTRIAXONE [Suspect]
     Active Substance: CEFTRIAXONE
  9. DAPSONE [Suspect]
     Active Substance: DAPSONE
  10. PHENYTOIN [Suspect]
     Active Substance: PHENYTOIN
     Indication: Craniocerebral injury
  11. PHENYTOIN [Suspect]
     Active Substance: PHENYTOIN
     Indication: Intracranial mass
  12. PHENYTOIN [Suspect]
     Active Substance: PHENYTOIN
     Indication: Cerebrovascular accident
  13. PHENYTOIN [Suspect]
     Active Substance: PHENYTOIN
     Indication: Seizure
  14. PHENYTOIN [Suspect]
     Active Substance: PHENYTOIN
     Indication: Hydrocephalus
  15. PHENYTOIN [Suspect]
     Active Substance: PHENYTOIN
     Indication: Aneurysm

REACTIONS (1)
  - Drug reaction with eosinophilia and systemic symptoms [Unknown]
